FAERS Safety Report 20871753 (Version 3)
Quarter: 2025Q3

REPORT INFORMATION
  Report Type: Spontaneous
  Country: EU (occurrence: EU)
  Receive Date: 20220525
  Receipt Date: 20250905
  Transmission Date: 20251021
  Serious: Yes (Hospitalization, Other)
  Sender: TAKEDA
  Company Number: None

PATIENT
  Age: 22 Year
  Sex: Male
  Weight: 68 kg

DRUGS (5)
  1. MESALAMINE [Suspect]
     Active Substance: MESALAMINE
     Indication: Colitis ulcerative
     Dosage: 1600 MILLIGRAM, TID
     Dates: start: 202204, end: 20220420
  2. PREDNISONE [Concomitant]
     Active Substance: PREDNISONE
     Indication: Colitis ulcerative
     Dosage: 50 MILLIGRAM, Q2WEEKS
     Dates: start: 20220412, end: 20220812
  3. PREDNISONE [Concomitant]
     Active Substance: PREDNISONE
     Dosage: 50 MILLIGRAM, 1/WEEK
  4. PREDNISONE [Concomitant]
     Active Substance: PREDNISONE
  5. Tredimin [Concomitant]
     Indication: Vitamin D deficiency
     Dosage: 25000 INTERNATIONAL UNIT, 1/WEEK
     Dates: start: 20220412

REACTIONS (1)
  - Myocarditis [Recovered/Resolved]

NARRATIVE: CASE EVENT DATE: 20220420
